FAERS Safety Report 6472512-0 (Version None)
Quarter: 2009Q4

REPORT INFORMATION
  Report Type: 
  Country: None (occurrence: None)
  Receive Date: 20091203
  Receipt Date: 20081206
  Transmission Date: 20100525
  Serious: No
  Sender: FDA-Public Use
  Company Number: US-AMGEN-KDL322663

PATIENT
  Sex: Female

DRUGS (4)
  1. ENBREL [Suspect]
     Indication: RHEUMATOID ARTHRITIS
     Route: 058
     Dates: start: 20080905
  2. ENBREL [Suspect]
     Indication: SYSTEMIC LUPUS ERYTHEMATOSUS
  3. PLAQUENIL [Concomitant]
     Route: 048
  4. ARAVA [Concomitant]
     Route: 048

REACTIONS (3)
  - ABSCESS [None]
  - HEADACHE [None]
  - INJECTION SITE HAEMATOMA [None]
